FAERS Safety Report 5279435-3 (Version None)
Quarter: 2007Q1

REPORT INFORMATION
  Report Type: 
  Country: None (occurrence: None)
  Receive Date: 20070328
  Receipt Date: 20070314
  Transmission Date: 20070707
  Serious: Yes (Other)
  Sender: FDA-Public Use
  Company Number: IT-ELI_LILLY_AND_COMPANY-IT200703003965

PATIENT
  Age: 72 Year
  Sex: Female

DRUGS (4)
  1. CYMBALTA [Suspect]
     Indication: DEPRESSION
     Dosage: 60 MG, DAILY (1/D)
     Route: 048
     Dates: start: 20060301
  2. EUTIROX [Concomitant]
     Indication: HYPOTHYROIDISM
     Dosage: 100 UG, DAILY (1/D)
     Route: 048
     Dates: start: 20010101
  3. TICLOPIDINE [Concomitant]
     Indication: ANGIOPATHY
  4. LORAZEPAM [Concomitant]

REACTIONS (2)
  - APLASTIC ANAEMIA [None]
  - VITAMIN B12 INCREASED [None]
